FAERS Safety Report 5519070-2 (Version None)
Quarter: 2007Q4

REPORT INFORMATION
  Report Type: 
  Country: None (occurrence: None)
  Receive Date: 20071114
  Receipt Date: 20071114
  Transmission Date: 20080405
  Serious: Yes (Death)
  Sender: FDA-Public Use
  Company Number: None

PATIENT
  Age: 97 Year
  Sex: Female

DRUGS (3)
  1. PERCOCET [Suspect]
     Dosage: TABLET
  2. FLEXERIL [Suspect]
     Dosage: TABLET
  3. COREG [Suspect]
     Dosage: TABLET

REACTIONS (7)
  - CHOKING [None]
  - DYSPNOEA [None]
  - LOSS OF CONSCIOUSNESS [None]
  - MEDICATION ERROR [None]
  - PULSE ABSENT [None]
  - RETCHING [None]
  - WRONG TECHNIQUE IN DRUG USAGE PROCESS [None]
